APPROVED DRUG PRODUCT: ATENOLOL
Active Ingredient: ATENOLOL
Strength: 50MG
Dosage Form/Route: TABLET;ORAL
Application: A073676 | Product #001
Applicant: SCS PHARMACEUTICALS
Approved: Oct 30, 1992 | RLD: No | RS: No | Type: DISCN